FAERS Safety Report 17856110 (Version 1)
Quarter: 2020Q2

REPORT INFORMATION
  Report Type: Spontaneous
  Country: US (occurrence: US)
  Receive Date: 20200603
  Receipt Date: 20200603
  Transmission Date: 20200714
  Serious: No
  Sender: FDA-Public Use
  Company Number: None

PATIENT
  Age: 47 Year
  Sex: Female
  Weight: 61.65 kg

DRUGS (9)
  1. VITAMIN D3 [Concomitant]
     Active Substance: CHOLECALCIFEROL
  2. XANAX [Concomitant]
     Active Substance: ALPRAZOLAM
  3. ALPHA LIPOIC ACID [Concomitant]
     Active Substance: .ALPHA.-LIPOIC ACID
  4. DEXAMETHASONE. [Concomitant]
     Active Substance: DEXAMETHASONE
  5. EVEROLIMUS. [Suspect]
     Active Substance: EVEROLIMUS
     Indication: BREAST CANCER
     Route: 048
     Dates: start: 20191202, end: 20200603
  6. QUERCETIN [Concomitant]
     Active Substance: QUERCETIN
  7. IBUPROFEN. [Concomitant]
     Active Substance: IBUPROFEN
  8. HYDROCHLOROTHIAZIDE. [Concomitant]
     Active Substance: HYDROCHLOROTHIAZIDE
  9. TUMERIC [Concomitant]
     Active Substance: HERBALS\TURMERIC

REACTIONS (1)
  - Disease progression [None]

NARRATIVE: CASE EVENT DATE: 20200603
